FAERS Safety Report 9217421 (Version 2)
Quarter: 2014Q4

REPORT INFORMATION
  Report Type: Report from Study
  Country: IL (occurrence: IL)
  Receive Date: 20130408
  Receipt Date: 20141119
  Transmission Date: 20150529
  Serious: Yes (Other)
  Sender: FDA-Public Use
  Company Number: IL-BAYER-2013-043937

PATIENT
  Age: 76 Year
  Sex: Female

DRUGS (1)
  1. BETAFERON [Suspect]
     Active Substance: INTERFERON BETA-1B
     Indication: MULTIPLE SCLEROSIS
     Dosage: UNK
     Dates: start: 19980101

REACTIONS (4)
  - Hodgkin^s disease [None]
  - Anti-interferon antibody positive [None]
  - Mobility decreased [None]
  - Neck mass [None]

NARRATIVE: CASE EVENT DATE: 20130619
